FAERS Safety Report 8765894 (Version 1)
Quarter: 2012Q4

REPORT INFORMATION
  Report Type: 
  Country: BR (occurrence: BR)
  Receive Date: 20120904
  Receipt Date: 20120904
  Transmission Date: 20130627
  Serious: Yes (Other)
  Sender: FDA-Public Use
  Company Number: PHHY2012BR075543

PATIENT
  Sex: Female

DRUGS (5)
  1. DIOVAN [Suspect]
     Indication: HYPERTENSION
     Dosage: 1 DF, daily
  2. SELOZOK [Suspect]
     Dosage: 50 mg, daily
     Route: 048
  3. MODURETIC [Suspect]
     Indication: BLOOD PRESSURE
     Dosage: 1 DF, daily
     Route: 048
  4. CITALOPRAM [Suspect]
     Indication: DEPRESSION
     Dosage: 0.5 DF (20mg) daily
     Route: 048
  5. VENALOT (TROXERUTIN/COUMARIN) [Suspect]
     Indication: THROMBOSIS
     Dosage: 1 DF,daily
     Route: 048

REACTIONS (2)
  - Cerebral atrophy [Not Recovered/Not Resolved]
  - Thrombosis [Recovered/Resolved]
